FAERS Safety Report 10175813 (Version 1)
Quarter: 2014Q2

REPORT INFORMATION
  Report Type: Spontaneous
  Country: MX (occurrence: MX)
  Receive Date: 20140516
  Receipt Date: 20140516
  Transmission Date: 20141212
  Serious: Yes (Death)
  Sender: FDA-Public Use
  Company Number: MX-ROCHE-1400790

PATIENT
  Age: 30 Year
  Sex: Female

DRUGS (5)
  1. HERCEPTIN [Suspect]
     Indication: BREAST CANCER
     Route: 042
  2. DOXORUBICIN [Concomitant]
     Indication: BREAST CANCER
  3. CYCLOPHOSPHAMIDE [Concomitant]
     Indication: BREAST CANCER
  4. LAPATINIB [Concomitant]
     Indication: BREAST CANCER
  5. VINORELBINE [Concomitant]
     Indication: BREAST CANCER
     Route: 042

REACTIONS (4)
  - Death [Fatal]
  - Breast cancer recurrent [Unknown]
  - Disease progression [Unknown]
  - Transaminases increased [Unknown]
